FAERS Safety Report 8610228-2 (Version None)
Quarter: 2012Q3

REPORT INFORMATION
  Report Type: 
  Country: None (occurrence: None)
  Receive Date: 20120822
  Receipt Date: 20120815
  Transmission Date: 20120928
  Serious: No
  Sender: FDA-Public Use
  Company Number: US-B.I. PHARMACEUTICALS,INC./RIDGEFIELD-2012-BP-19583BP

PATIENT
  Age: 33 Year
  Sex: Female

DRUGS (2)
  1. ZANTAC 150 [Suspect]
     Dosage: 450 MG
     Route: 048
     Dates: start: 20120815, end: 20120815
  2. ZANTAC 150 [Suspect]
     Indication: DYSPEPSIA
     Dosage: 150 MG
     Route: 048

REACTIONS (1)
  - INCORRECT DOSE ADMINISTERED [None]
